FAERS Safety Report 10502194 (Version 1)
Quarter: 2014Q4

REPORT INFORMATION
  Report Type: Spontaneous
  Country: US (occurrence: US)
  Receive Date: 20141007
  Receipt Date: 20141007
  Transmission Date: 20150528
  Serious: Yes (Other)
  Sender: FDA-Public Use
  Company Number: US-ELI_LILLY_AND_COMPANY-US201410001165

PATIENT
  Age: 37 Year
  Sex: Female
  Weight: 43 kg

DRUGS (2)
  1. HUMALOG [Suspect]
     Active Substance: INSULIN LISPRO
     Indication: PRODUCT USED FOR UNKNOWN INDICATION
     Dosage: UNK
     Route: 058
  2. DICLOFENAC [Concomitant]
     Active Substance: DICLOFENAC
     Indication: JOINT SWELLING
     Dosage: UNK
     Dates: start: 20140928

REACTIONS (3)
  - Pollakiuria [Unknown]
  - Blood glucose fluctuation [Unknown]
  - Dry mouth [Unknown]

NARRATIVE: CASE EVENT DATE: 20140928
